FAERS Safety Report 9558556 (Version 1)
Quarter: 2013Q3

REPORT INFORMATION
  Report Type: Spontaneous
  Country: CA (occurrence: CA)
  Receive Date: 20130926
  Receipt Date: 20130926
  Transmission Date: 20140515
  Serious: Yes (Hospitalization)
  Sender: FDA-Public Use
  Company Number: PHHY2013CA104841

PATIENT
  Age: 45 Year
  Sex: Female

DRUGS (1)
  1. PREDNISONE [Suspect]
     Indication: OPTIC NEURITIS
     Dosage: 1250 MG/DAY
     Route: 048

REACTIONS (7)
  - Sinus bradycardia [Recovered/Resolved]
  - Chest pain [Recovered/Resolved]
  - Dyspnoea [Recovered/Resolved]
  - Asthenia [Recovered/Resolved]
  - Fatigue [Recovered/Resolved]
  - Headache [Recovered/Resolved]
  - Oedema peripheral [Recovered/Resolved]
